FAERS Safety Report 9540670 (Version 3)
Quarter: 2014Q1

REPORT INFORMATION
  Report Type: Spontaneous
  Country: JP (occurrence: JP)
  Receive Date: 20130920
  Receipt Date: 20140330
  Transmission Date: 20141002
  Serious: Yes (Other)
  Sender: FDA-Public Use
  Company Number: JP-009507513-1309JPN006477

PATIENT
  Age: 44 Year
  Sex: Female
  Weight: 71 kg

DRUGS (3)
  1. ESLAX INTRAVENOUS 25MG/2.5ML [Suspect]
     Indication: NEUROMUSCULAR BLOCKING THERAPY
     Dosage: DAILY DOSAGE UNKNOWN
     Route: 042
  2. ESLAX INTRAVENOUS 25MG/2.5ML [Suspect]
     Indication: INDUCTION OF ANAESTHESIA
  3. FENTANYL [Suspect]
     Indication: INDUCTION OF ANAESTHESIA
     Dosage: DAILY DOSE UNKNOWN
     Route: 042

REACTIONS (2)
  - Diplegia [Recovered/Resolved]
  - IIIrd nerve paralysis [Not Recovered/Not Resolved]
